FAERS Safety Report 5894828-9 (Version None)
Quarter: 2008Q3

REPORT INFORMATION
  Report Type: 
  Country: None (occurrence: None)
  Receive Date: 20080924
  Receipt Date: 20080912
  Transmission Date: 20090109
  Serious: Yes (Hospitalization)
  Sender: FDA-Public Use
  Company Number: FR-NOVOPROD-279398

PATIENT
  Age: 13 Year
  Sex: Male

DRUGS (2)
  1. NORDITROPIN [Suspect]
     Indication: GROWTH RETARDATION
     Dosage: UNK, UNK
     Dates: start: 20030220, end: 20060824
  2. NORDITROPIN [Suspect]
     Dosage: 2 MG, UNK

REACTIONS (2)
  - ADENOMA BENIGN [None]
  - CUSHING'S SYNDROME [None]
